FAERS Safety Report 7408159-9 (Version None)
Quarter: 2011Q2

REPORT INFORMATION
  Report Type: 
  Country: None (occurrence: None)
  Receive Date: 20110412
  Receipt Date: 20101111
  Transmission Date: 20111010
  Serious: Yes (Hospitalization, Other)
  Sender: FDA-Public Use
  Company Number: US-BAYER-200930036NA

PATIENT
  Age: 33 Year
  Sex: Female
  Weight: 83 kg

DRUGS (9)
  1. NASONEX [Concomitant]
  2. EFFEXOR XR [Concomitant]
     Indication: DEPRESSION
  3. AVELOX [Concomitant]
  4. EFFEXOR XR [Concomitant]
     Indication: STRESS
     Dosage: 100 MG (DAILY DOSE), ,
     Dates: start: 20070101
  5. SKELAXIN [Concomitant]
  6. YAZ [Suspect]
     Indication: STRESS
     Route: 048
     Dates: start: 20070614, end: 20080124
  7. YAZ [Suspect]
     Route: 048
     Dates: start: 20080430, end: 20090108
  8. HYDROCODONE BITARTRATE [Concomitant]
  9. CELEBREX [Concomitant]

REACTIONS (5)
  - OEDEMA PERIPHERAL [None]
  - HYPOAESTHESIA [None]
  - PAIN IN EXTREMITY [None]
  - INJURY [None]
  - DEEP VEIN THROMBOSIS [None]
